FAERS Safety Report 4517487-6 (Version None)
Quarter: 2004Q4

REPORT INFORMATION
  Report Type: 
  Country: None (occurrence: None)
  Receive Date: 20041130
  Receipt Date: 20041111
  Transmission Date: 20050328
  Serious: Yes (Hospitalization)
  Sender: FDA-Public Use
  Company Number: USA041183568

PATIENT
  Age: 87 Year
  Sex: Female
  Weight: 76 kg

DRUGS (3)
  1. HUMULIN 70/30 [Suspect]
     Dosage: 30 U DAY
     Dates: start: 20020101
  2. LANTUS [Concomitant]
  3. ALBUTEROL SULFATE W/IPRATROPIUM BROMIDE [Concomitant]

REACTIONS (6)
  - BLOOD GLUCOSE ABNORMAL [None]
  - CATARACT OPERATION [None]
  - CHEST DISCOMFORT [None]
  - HYPOGLYCAEMIA [None]
  - MEDICATION ERROR [None]
  - REACTION TO FOOD ADDITIVE [None]
